APPROVED DRUG PRODUCT: SUMATRIPTAN SUCCINATE
Active Ingredient: SUMATRIPTAN SUCCINATE
Strength: EQ 50MG BASE
Dosage Form/Route: TABLET;ORAL
Application: A076847 | Product #002 | TE Code: AB
Applicant: DR REDDYS LABORATORIES INC
Approved: Aug 10, 2009 | RLD: No | RS: No | Type: RX